FAERS Safety Report 19513631 (Version 1)
Quarter: 2021Q3

REPORT INFORMATION
  Report Type: Spontaneous
  Country: CH (occurrence: CH)
  Receive Date: 20210709
  Receipt Date: 20210709
  Transmission Date: 20211014
  Serious: Yes (Hospitalization)
  Sender: FDA-Public Use
  Company Number: CH-ASTRAZENECA-2021A584975

PATIENT
  Age: 26 Year
  Sex: Male

DRUGS (26)
  1. ESCITALOPRAM [Interacting]
     Active Substance: ESCITALOPRAM OXALATE
     Indication: DEPRESSION
     Route: 065
  2. ESCITALOPRAM [Interacting]
     Active Substance: ESCITALOPRAM OXALATE
     Indication: DEPRESSION
     Route: 065
  3. METOPROLOL DR [Suspect]
     Active Substance: METOPROLOL
     Indication: TACHYCARDIA
     Route: 048
  4. LISINOPRIL. [Suspect]
     Active Substance: LISINOPRIL
     Indication: TACHYCARDIA
     Route: 048
  5. ESCITALOPRAM [Interacting]
     Active Substance: ESCITALOPRAM OXALATE
     Indication: DEPRESSION
     Route: 065
  6. QUETIAPINE. [Interacting]
     Active Substance: QUETIAPINE
     Indication: TENSION
     Route: 048
  7. QUETIAPINE. [Interacting]
     Active Substance: QUETIAPINE
     Indication: TACHYPHRENIA
     Dosage: GRADUALLY (OVER 5 DAYS) INCREASED TO 100 MG AT NIGHT
     Route: 048
  8. LISINOPRIL. [Suspect]
     Active Substance: LISINOPRIL
     Indication: TACHYCARDIA
     Route: 048
  9. QUETIAPINE XR [Suspect]
     Active Substance: QUETIAPINE
     Indication: TACHYPHRENIA
     Dosage: GRADUALLY (OVER 5 DAYS) INCREASED TO 200 MG IN THE EVENING
     Route: 048
  10. LISINOPRIL. [Suspect]
     Active Substance: LISINOPRIL
     Indication: HYPERTENSION
     Route: 048
  11. LISINOPRIL. [Suspect]
     Active Substance: LISINOPRIL
     Indication: TACHYCARDIA
     Route: 048
  12. QUETIAPINE. [Interacting]
     Active Substance: QUETIAPINE
     Indication: TENSION
     Dosage: GRADUALLY (OVER 5 DAYS) INCREASED TO 100 MG AT NIGHT
     Route: 048
  13. LISINOPRIL. [Suspect]
     Active Substance: LISINOPRIL
     Indication: TACHYCARDIA
     Route: 048
  14. QUETIAPINE XR [Interacting]
     Active Substance: QUETIAPINE
     Indication: TACHYPHRENIA
     Dosage: GRADUALLY (OVER 5 DAYS) INCREASED TO 200 MG IN THE EVENING
     Route: 048
  15. QUETIAPINE XR [Interacting]
     Active Substance: QUETIAPINE
     Indication: TENSION
     Dosage: GRADUALLY (OVER 5 DAYS) INCREASED TO 200 MG IN THE EVENING
     Route: 048
  16. QUETIAPINE. [Interacting]
     Active Substance: QUETIAPINE
     Indication: TENSION
     Route: 048
  17. QUETIAPINE. [Interacting]
     Active Substance: QUETIAPINE
     Indication: TENSION
     Dosage: GRADUALLY (OVER 5 DAYS) INCREASED TO 100 MG AT NIGHT
     Route: 048
  18. LISINOPRIL. [Suspect]
     Active Substance: LISINOPRIL
     Indication: HYPERTENSION
     Route: 048
  19. QUETIAPINE. [Interacting]
     Active Substance: QUETIAPINE
     Indication: TACHYPHRENIA
     Route: 048
  20. QUETIAPINE. [Interacting]
     Active Substance: QUETIAPINE
     Indication: TACHYPHRENIA
     Route: 048
  21. LISINOPRIL. [Suspect]
     Active Substance: LISINOPRIL
     Indication: HYPERTENSION
     Route: 048
  22. QUETIAPINE XR [Interacting]
     Active Substance: QUETIAPINE
     Indication: TENSION
     Dosage: GRADUALLY (OVER 5 DAYS) INCREASED TO 200 MG IN THE EVENING
     Route: 048
  23. QUETIAPINE. [Interacting]
     Active Substance: QUETIAPINE
     Indication: TACHYPHRENIA
     Dosage: GRADUALLY (OVER 5 DAYS) INCREASED TO 100 MG AT NIGHT
     Route: 048
  24. METOPROLOL DR [Suspect]
     Active Substance: METOPROLOL
     Indication: TACHYCARDIA
     Route: 048
  25. LISINOPRIL. [Suspect]
     Active Substance: LISINOPRIL
     Indication: HYPERTENSION
     Route: 048
  26. ESCITALOPRAM [Interacting]
     Active Substance: ESCITALOPRAM OXALATE
     Indication: DEPRESSION
     Route: 065

REACTIONS (3)
  - Postural orthostatic tachycardia syndrome [Recovered/Resolved]
  - Drug interaction [Unknown]
  - Off label use [Unknown]
